FAERS Safety Report 18556643 (Version 1)
Quarter: 2020Q4

REPORT INFORMATION
  Report Type: Spontaneous
  Country: US (occurrence: US)
  Receive Date: 20201128
  Receipt Date: 20201128
  Transmission Date: 20210114
  Serious: Yes (Other)
  Sender: FDA-Public Use
  Company Number: NVSC2020US305848

PATIENT
  Sex: Female

DRUGS (4)
  1. DORZOLAMIDE/TIMOLOL [Suspect]
     Active Substance: DORZOLAMIDE\TIMOLOL
     Indication: GLAUCOMA
     Dosage: 22.3 MG(22.3 MG AND 0.8 MG PER ML)(ONE DROP IN EACH EYE TWICE A DAY)
     Route: 065
  2. PHOSPHOLINE IODIDE [Suspect]
     Active Substance: ECHOTHIOPHATE IODIDE
     Indication: GLAUCOMA
     Dosage: 0.125% ONE DROP IN RIGHT EYE TWICE A DAY
     Route: 065
  3. TIMOLOL MALEATE. [Suspect]
     Active Substance: TIMOLOL MALEATE
     Indication: GLAUCOMA
     Dosage: UNK
     Route: 065
  4. PREDNISOLONE ACETATE. [Suspect]
     Active Substance: PREDNISOLONE ACETATE
     Indication: GLAUCOMA
     Dosage: 1% ONE DROP ONCE A DAY IN LEFT EYE
     Route: 065

REACTIONS (1)
  - Glaucoma [Unknown]
